FAERS Safety Report 4594033-2 (Version None)
Quarter: 2005Q1

REPORT INFORMATION
  Report Type: 
  Country: None (occurrence: None)
  Receive Date: 20050218
  Receipt Date: 20050202
  Transmission Date: 20050727
  Serious: Yes (Life-Threatening, Hospitalization)
  Sender: FDA-Public Use
  Company Number: 2004-BP-10727NB

PATIENT
  Age: 80 Year
  Sex: Female

DRUGS (9)
  1. MOBIC [Suspect]
     Indication: RHEUMATOID ARTHRITIS
     Dosage: 10 MG, PO
     Route: 048
     Dates: start: 20030804, end: 20040118
  2. PREDNISOLONE [Suspect]
     Indication: OEDEMA PERIPHERAL
     Dosage: 5 MG, PO
     Route: 048
     Dates: start: 20020118, end: 20040118
  3. BENET           (RISPEDRONATE SODIUM) [Suspect]
     Indication: OSTEOPOROSIS
     Dosage: 2.5 MG, PO
     Route: 048
     Dates: start: 20021023, end: 20040118
  4. LORCAM                 (LORNOXICAM) [Suspect]
     Indication: LUMBAR SPINAL STENOSIS
     Dosage: 12 MG, PO
     Route: 048
     Dates: start: 20021218, end: 20040118
  5. LASIX [Concomitant]
  6. MYONAL                      (EPERISONE HYDROCHLORIDE) [Concomitant]
     Route: 048
  7. SELBEX (TEPRENONE) [Concomitant]
     Route: 048
  8. MAGNESIUM OXIDE [Concomitant]
     Route: 048
  9. PROCYLIN               (BERAPROST SODIUM) [Concomitant]

REACTIONS (2)
  - GASTROINTESTINAL NECROSIS [None]
  - GASTROINTESTINAL PERFORATION [None]
